FAERS Safety Report 19701950 (Version 1)
Quarter: 2021Q3

REPORT INFORMATION
  Report Type: Spontaneous
  Country: US (occurrence: US)
  Receive Date: 20210813
  Receipt Date: 20210813
  Transmission Date: 20211014
  Serious: No
  Sender: FDA-Public Use
  Company Number: US-INCYTE CORPORATION-2021IN007079

PATIENT

DRUGS (1)
  1. JAKAFI [Suspect]
     Active Substance: RUXOLITINIB
     Indication: MYELOFIBROSIS
     Dosage: 50 MILLIGRAM, BID (25 MG TABLETS)
     Route: 048
     Dates: start: 201602

REACTIONS (2)
  - Product availability issue [Unknown]
  - Pain [Unknown]
